FAERS Safety Report 15133621 (Version 1)
Quarter: 2018Q3

REPORT INFORMATION
  Report Type: Report from Study
  Country: None (occurrence: RO)
  Receive Date: 20180712
  Receipt Date: 20180712
  Transmission Date: 20181010
  Serious: Yes (Other)
  Sender: FDA-Public Use
  Company Number: RO-ABBVIE-18K-135-2411221-00

PATIENT
  Age: 21 Year
  Sex: Female

DRUGS (3)
  1. THIOSSEN [Suspect]
     Active Substance: THIOCTIC ACID
     Indication: PAIN IN EXTREMITY
     Route: 065
  2. HUMIRA [Suspect]
     Active Substance: ADALIMUMAB
     Indication: PSORIASIS
     Route: 058
     Dates: start: 2011, end: 2013
  3. HUMIRA [Suspect]
     Active Substance: ADALIMUMAB
     Route: 058
     Dates: start: 20141115

REACTIONS (4)
  - Pain in extremity [Recovered/Resolved]
  - Anaphylactic shock [Recovered/Resolved]
  - Asthma [Not Recovered/Not Resolved]
  - Exposure during pregnancy [Unknown]

NARRATIVE: CASE EVENT DATE: 201312
